FAERS Safety Report 8399371-3 (Version None)
Quarter: 2012Q2

REPORT INFORMATION
  Report Type: 
  Country: None (occurrence: None)
  Receive Date: 20120531
  Receipt Date: 20120522
  Transmission Date: 20120825
  Serious: No
  Sender: FDA-Public Use
  Company Number: US-BAYER-2012-051033

PATIENT
  Age: 78 Year

DRUGS (1)
  1. ULTRAVIST 150 [Suspect]
     Dosage: UNK
     Dates: start: 20120522, end: 20120522

REACTIONS (2)
  - NAUSEA [None]
  - VOMITING [None]
